FAERS Safety Report 5834211-5 (Version None)
Quarter: 2008Q3

REPORT INFORMATION
  Report Type: 
  Country: None (occurrence: None)
  Receive Date: 20080805
  Receipt Date: 20080728
  Transmission Date: 20090109
  Serious: Yes (Other)
  Sender: FDA-Public Use
  Company Number: CH-JNJFOC-20080706352

PATIENT

DRUGS (2)
  1. TOPAMAX [Suspect]
     Indication: EPILEPSY
  2. PHENYTOIN [Interacting]
     Indication: DRUG USE FOR UNKNOWN INDICATION
     Route: 065

REACTIONS (3)
  - DRUG INTERACTION [None]
  - PAIN [None]
  - URINE SODIUM INCREASED [None]
